FAERS Safety Report 9473523 (Version 1)
Quarter: 2013Q3

REPORT INFORMATION
  Report Type: Spontaneous
  Country: US (occurrence: US)
  Receive Date: 20130823
  Receipt Date: 20130823
  Transmission Date: 20140515
  Serious: No
  Sender: FDA-Public Use
  Company Number: US-GALDERMA-US-GDP-12415393

PATIENT
  Sex: Female

DRUGS (8)
  1. METROGEL (METRONIDAZOLE) GEL, 1% [Suspect]
     Indication: ERYTHEMA
     Route: 061
     Dates: start: 2007
  2. SYNTHROID [Concomitant]
     Indication: HYPOTHYROIDISM
     Route: 048
     Dates: start: 2007
  3. SIMVASTATIN [Concomitant]
     Indication: HYPERCHOLESTEROLAEMIA
     Route: 048
     Dates: start: 2007
  4. QUERCETIN [Concomitant]
     Indication: MEDICAL DIET
     Route: 048
     Dates: start: 2007
  5. NEUTROGENA UNSCENTED CLEANSER [Concomitant]
     Indication: THERAPEUTIC SKIN CARE TOPICAL
     Route: 061
  6. AVEENO DAILY MOISTURIZER [Concomitant]
     Indication: THERAPEUTIC SKIN CARE TOPICAL
     Route: 061
     Dates: end: 20121004
  7. ALLERGY SHOTS [Concomitant]
     Route: 023
     Dates: start: 2010
  8. NATURAL SUPPLEMENTS [Concomitant]
     Route: 048

REACTIONS (7)
  - Rash macular [Recovered/Resolved]
  - Frequent bowel movements [Recovering/Resolving]
  - Weight decreased [Recovering/Resolving]
  - Pruritus [Recovering/Resolving]
  - Skin burning sensation [Recovering/Resolving]
  - Paraesthesia [Recovering/Resolving]
  - Off label use [Recovering/Resolving]
